FAERS Safety Report 8418449-9 (Version None)
Quarter: 2012Q2

REPORT INFORMATION
  Report Type: 
  Country: None (occurrence: None)
  Receive Date: 20120607
  Receipt Date: 20120601
  Transmission Date: 20120825
  Serious: Yes (Other)
  Sender: FDA-Public Use
  Company Number: BR-PFIZER INC-2012133513

PATIENT
  Age: 35 Year
  Sex: Male

DRUGS (1)
  1. XALATAN [Suspect]
     Indication: GLAUCOMA
     Dosage: 3 UG, 1X/DAY (ONE DROP EACH EYE, ONCE A DAY)
     Route: 047
     Dates: start: 20040601

REACTIONS (1)
  - BRAIN NEOPLASM [None]
